FAERS Safety Report 18741266 (Version 3)
Quarter: 2021Q2

REPORT INFORMATION
  Report Type: Report from Study
  Country: US (occurrence: US)
  Receive Date: 20210114
  Receipt Date: 20210426
  Transmission Date: 20210717
  Serious: Yes (Hospitalization)
  Sender: FDA-Public Use
  Company Number: US-ROCHE-2746404

PATIENT
  Age: 83 Year
  Sex: Female
  Weight: 84.9 kg

DRUGS (17)
  1. CARBOPLATIN. [Suspect]
     Active Substance: CARBOPLATIN
     Indication: SMALL CELL LUNG CANCER EXTENSIVE STAGE
     Dosage: ON 29/DEC/2020, SHE RECEIVED MOST RECENT DOSE OF CARBOPLATIN 360 MG PRIOR TO ADVERSE EVENT.
     Route: 042
     Dates: start: 20201202
  2. METOPROLOL TARTRATE. [Concomitant]
     Active Substance: METOPROLOL TARTRATE
     Indication: HYPERTENSION
  3. AMLODIPINE [Concomitant]
     Active Substance: AMLODIPINE BESYLATE
     Indication: HYPERTENSION
     Route: 048
     Dates: start: 20201216
  4. NEULASTA [Concomitant]
     Active Substance: PEGFILGRASTIM
     Dates: start: 20201231, end: 20201231
  5. ETOPOSIDE. [Suspect]
     Active Substance: ETOPOSIDE
     Indication: SMALL CELL LUNG CANCER EXTENSIVE STAGE
     Dosage: DOSE OF ETOPOSIDE FIRST ADMINISTERED: 200 MG?ON 31/DEC/2020, SHE RECEIVED MOST RECENT DOSE OF ETOPOS
     Route: 042
     Dates: start: 20201202
  6. MAGNESIUM SULFATE. [Concomitant]
     Active Substance: MAGNESIUM SULFATE
     Route: 042
     Dates: start: 20210104, end: 20210105
  7. POTASSIUM PHOSPHATE [Concomitant]
     Active Substance: POTASSIUM PHOSPHATE
     Indication: PROPHYLAXIS
     Dosage: 30 OTHER
     Route: 042
     Dates: start: 20210105, end: 20210105
  8. SODIUM CHLORIDE. [Concomitant]
     Active Substance: SODIUM CHLORIDE
     Indication: HYPONATRAEMIA
     Route: 048
     Dates: start: 20201218
  9. LISINOPRIL. [Concomitant]
     Active Substance: LISINOPRIL
     Indication: HYPERTENSION
     Route: 048
     Dates: start: 20201216, end: 20201221
  10. ONDANSETRON [Concomitant]
     Active Substance: ONDANSETRON
     Indication: CHEMOTHERAPY SIDE EFFECT PROPHYLAXIS
     Route: 042
     Dates: start: 20201202
  11. ATEZOLIZUMAB. [Suspect]
     Active Substance: ATEZOLIZUMAB
     Indication: SMALL CELL LUNG CANCER EXTENSIVE STAGE
     Dosage: ON 29/DEC/2020, SHE RECEIVED MOST RECENT DOSE OF ATEZLIZUMAB 1200 MG PRIOR TO ADVERSE EVENT.
     Route: 042
     Dates: start: 20201202
  12. DEXAMETHASONE. [Concomitant]
     Active Substance: DEXAMETHASONE
     Indication: CHEMOTHERAPY SIDE EFFECT PROPHYLAXIS
     Dates: start: 20201202
  13. MTIG 7192A [Suspect]
     Active Substance: TIRAGOLUMAB
     Indication: SMALL CELL LUNG CANCER EXTENSIVE STAGE
     Dosage: ON 29/DEC/2020, SHE RECEIVED MOST RECENT DOSE OF MTIG 7192A PRIOR TO ADVERSE EVENT.
     Route: 042
     Dates: start: 20201202
  14. FOSAPREPITANT DIMEGLUMINE. [Concomitant]
     Active Substance: FOSAPREPITANT DIMEGLUMINE
     Indication: CHEMOTHERAPY SIDE EFFECT PROPHYLAXIS
     Dates: start: 20201202
  15. ENOXAPARIN [Concomitant]
     Active Substance: ENOXAPARIN
     Indication: ATRIAL FIBRILLATION
     Dates: end: 20201215
  16. ONDANSETRON [Concomitant]
     Active Substance: ONDANSETRON
     Dates: start: 20201202
  17. POTASSIUM CHLORIDE. [Concomitant]
     Active Substance: POTASSIUM CHLORIDE
     Indication: PROPHYLAXIS
     Dosage: 40 OTHER
     Route: 048
     Dates: start: 20210105, end: 20210105

REACTIONS (1)
  - Diverticular perforation [Recovered/Resolved]

NARRATIVE: CASE EVENT DATE: 20210103
